FAERS Safety Report 19093202 (Version 2)
Quarter: 2022Q2

REPORT INFORMATION
  Report Type: Spontaneous
  Country: BR (occurrence: BR)
  Receive Date: 20210405
  Receipt Date: 20220628
  Transmission Date: 20220721
  Serious: Yes (Other)
  Sender: FDA-Public Use
  Company Number: BR-GLAXOSMITHKLINE-BR2021AMR071964

PATIENT

DRUGS (4)
  1. CEFUROXIME [Suspect]
     Active Substance: CEFUROXIME
     Indication: Pneumonia
     Dosage: UNK, 2, 5 ML EVERY 12 HOURS
     Route: 048
     Dates: start: 20210327
  2. CEFTRIAXONE SODIUM [Suspect]
     Active Substance: CEFTRIAXONE SODIUM
     Indication: Product used for unknown indication
     Dosage: UNK
  3. PRELONE [Suspect]
     Active Substance: PREDNISOLONE
     Indication: Product used for unknown indication
     Dosage: UNK
  4. HYDROXYZINE HYDROCHLORIDE [Suspect]
     Active Substance: HYDROXYZINE HYDROCHLORIDE
     Indication: Product used for unknown indication
     Dosage: UNK

REACTIONS (5)
  - Pneumonia [Recovering/Resolving]
  - Vomiting [Recovered/Resolved]
  - Diarrhoea [Unknown]
  - Respiratory disorder [Recovering/Resolving]
  - Cough [Recovering/Resolving]

NARRATIVE: CASE EVENT DATE: 20210301
